FAERS Safety Report 19880085 (Version 1)
Quarter: 2021Q3

REPORT INFORMATION
  Report Type: Spontaneous
  Country: DE (occurrence: DE)
  Receive Date: 20210924
  Receipt Date: 20210924
  Transmission Date: 20211014
  Serious: Yes (Other)
  Sender: FDA-Public Use
  Company Number: DE-SA-2021SA313000

PATIENT
  Age: 61 Year
  Sex: Female

DRUGS (1)
  1. DUPIXENT [Suspect]
     Active Substance: DUPILUMAB
     Dosage: UNK
     Route: 065
     Dates: start: 2021

REACTIONS (6)
  - Swelling [Unknown]
  - Chills [Unknown]
  - Hyperhidrosis [Unknown]
  - Pain [Unknown]
  - Injection site discolouration [Unknown]
  - Impaired work ability [Unknown]

NARRATIVE: CASE EVENT DATE: 202109
